FAERS Safety Report 6178663-2 (Version None)
Quarter: 2009Q2

REPORT INFORMATION
  Report Type: 
  Country: None (occurrence: None)
  Receive Date: 20090430
  Receipt Date: 20090422
  Transmission Date: 20091009
  Serious: Yes (Hospitalization)
  Sender: FDA-Public Use
  Company Number: DSU-2009-00935

PATIENT
  Sex: Female
  Weight: 67.1324 kg

DRUGS (11)
  1. BENICAR [Suspect]
     Indication: HYPERTENSION
     Dosage: 20 MG (20 MG, QD), PER ORAL
     Route: 048
     Dates: end: 20080101
  2. . [Concomitant]
     Indication: HYPERTENSION
     Dosage: 20 MG (20 MG, QD), PER ORAL
     Route: 048
     Dates: end: 20080101
  3. NORVASC [Concomitant]
  4. DARVOCET (PROPOXYPHENE, PARACETAMOL) (TABLET) (PROXYPHENE, PARACETAMOL [Concomitant]
  5. LIPITOR [Concomitant]
  6. FOLIC ACID (FOLIC ACID) (TABLET) (FOLIC ACID) [Concomitant]
  7. TORSEMIDE (TORASEMIDE) (TABLET) (TORASEMIDE) [Concomitant]
  8. VITAMIN E (TOCOPHEROL) (TOCOPHEROL) [Concomitant]
  9. VITAMIN C (ASCORBIC ACID) (ASCORBIC ACID) [Concomitant]
  10. TAGAMET (CIMETIDINE) (TABLET) (CIMETIDINE) [Concomitant]
  11. SYNTHROID (LEVOTHYROXINE SODIUM) (TABLET) (LEVOTHYROXINE SODIUM) [Concomitant]

REACTIONS (2)
  - GASTROINTESTINAL HAEMORRHAGE [None]
  - LOSS OF CONSCIOUSNESS [None]
